FAERS Safety Report 5123380-0 (Version None)
Quarter: 2006Q4

REPORT INFORMATION
  Report Type: 
  Country: None (occurrence: None)
  Receive Date: 20061009
  Receipt Date: 20060926
  Transmission Date: 20070319
  Serious: Yes (Other)
  Sender: FDA-Public Use
  Company Number: DE-GILEAD-2006-0010343

PATIENT
  Sex: Male

DRUGS (1)
  1. TRUVADA [Suspect]

REACTIONS (1)
  - PULMONARY EMBOLISM [None]
